FAERS Safety Report 12269156 (Version 1)
Quarter: 2016Q2

REPORT INFORMATION
  Report Type: Spontaneous
  Country: FR (occurrence: FR)
  Receive Date: 20160414
  Receipt Date: 20160414
  Transmission Date: 20160815
  Serious: Yes (Hospitalization)
  Sender: FDA-Public Use
  Company Number: FR-ELI_LILLY_AND_COMPANY-FR201604000226

PATIENT
  Age: 83 Year
  Sex: Male

DRUGS (2)
  1. ZYPREXA [Suspect]
     Active Substance: OLANZAPINE
     Indication: PSYCHIATRIC DECOMPENSATION
     Dosage: 2.5 MG, UNKNOWN
     Route: 048
     Dates: start: 20160309, end: 20160314
  2. DEPAKOTE [Suspect]
     Active Substance: DIVALPROEX SODIUM
     Indication: PSYCHIATRIC DECOMPENSATION
     Dosage: UNK, UNKNOWN
     Route: 048
     Dates: start: 20160308, end: 20160314

REACTIONS (6)
  - Activated partial thromboplastin time prolonged [Not Recovered/Not Resolved]
  - Circulating anticoagulant [Not Recovered/Not Resolved]
  - Hepatocellular injury [Not Recovered/Not Resolved]
  - Lymphopenia [Not Recovered/Not Resolved]
  - Hyponatraemia [Not Recovered/Not Resolved]
  - Neutropenia [Not Recovered/Not Resolved]

NARRATIVE: CASE EVENT DATE: 20160314
